FAERS Safety Report 21494605 (Version 1)
Quarter: 2022Q4

REPORT INFORMATION
  Report Type: Report from Study
  Country: NL (occurrence: NL)
  Receive Date: 20221021
  Receipt Date: 20221021
  Transmission Date: 20230113
  Serious: Yes (Other)
  Sender: FDA-Public Use
  Company Number: NL-GILEAD-2022-0602242

PATIENT
  Sex: Female
  Weight: 72 kg

DRUGS (1)
  1. SACITUZUMAB GOVITECAN [Suspect]
     Active Substance: SACITUZUMAB GOVITECAN
     Indication: Triple negative breast cancer
     Dosage: 200 MG X 3 CYCLES
     Route: 065
     Dates: end: 20221018

REACTIONS (1)
  - Malignant neoplasm progression [Unknown]
